FAERS Safety Report 6256014-2 (Version None)
Quarter: 2009Q3

REPORT INFORMATION
  Report Type: 
  Country: None (occurrence: None)
  Receive Date: 20090706
  Receipt Date: 20090629
  Transmission Date: 20100115
  Serious: Yes (Life-Threatening)
  Sender: FDA-Public Use
  Company Number: US-CELGENEUS-163-21880-09031950

PATIENT
  Sex: Male

DRUGS (3)
  1. REVLIMID [Suspect]
     Route: 048
     Dates: start: 20090228, end: 20090312
  2. REVLIMID [Suspect]
     Route: 048
     Dates: start: 20080201, end: 20080701
  3. REVLIMID [Suspect]
     Route: 048
     Dates: start: 20080122, end: 20080201

REACTIONS (2)
  - PLATELET COUNT DECREASED [None]
  - WHITE BLOOD CELL COUNT DECREASED [None]
